FAERS Safety Report 6711079-6 (Version None)
Quarter: 2010Q2

REPORT INFORMATION
  Report Type: 
  Country: None (occurrence: None)
  Receive Date: 20100505
  Receipt Date: 20090512
  Transmission Date: 20101027
  Serious: No
  Sender: FDA-Public Use
  Company Number: US-KINGPHARMUSA00001-K200900594

PATIENT
  Sex: Female
  Weight: 62.132 kg

DRUGS (5)
  1. AVINZA [Suspect]
     Indication: ARTHRALGIA
     Dosage: 30 MG, QD
     Route: 048
     Dates: start: 20090401
  2. DARVOCET [Concomitant]
     Indication: BREAKTHROUGH PAIN
  3. CLONOPIN [Concomitant]
  4. TRAZODONE HCL [Concomitant]
  5. RESTORIL [Concomitant]
     Dosage: UNK

REACTIONS (1)
  - OPIATES POSITIVE [None]
